FAERS Safety Report 16296882 (Version 1)
Quarter: 2019Q2

REPORT INFORMATION
  Report Type: Spontaneous
  Country: US (occurrence: US)
  Receive Date: 20190509
  Receipt Date: 20190509
  Transmission Date: 20190711
  Serious: Yes (Hospitalization)
  Sender: FDA-Public Use
  Company Number: None

PATIENT
  Age: 56 Year
  Sex: Female

DRUGS (9)
  1. HYDROXYZINE [Concomitant]
     Active Substance: HYDROXYZINE HYDROCHLORIDE
     Dates: start: 20181226
  2. CELECOXIB. [Concomitant]
     Active Substance: CELECOXIB
     Dates: start: 20181216
  3. LOSARTAN. [Concomitant]
     Active Substance: LOSARTAN
     Dates: start: 20180625
  4. GABAPENTIN. [Concomitant]
     Active Substance: GABAPENTIN
     Dates: start: 20190308
  5. VALACYCLOVIR [Concomitant]
     Active Substance: VALACYCLOVIR HYDROCHLORIDE
     Dates: start: 20190228
  6. DULOXETINE. [Concomitant]
     Active Substance: DULOXETINE
     Dates: start: 20181220
  7. OMEPRAZOLE. [Concomitant]
     Active Substance: OMEPRAZOLE
     Dates: start: 20190116
  8. ENBREL [Suspect]
     Active Substance: ETANERCEPT
     Indication: RHEUMATOID ARTHRITIS
     Dosage: ?          OTHER FREQUENCY:ONCE A WEEK;?
     Route: 058
  9. TRAZODONE [Concomitant]
     Active Substance: TRAZODONE HYDROCHLORIDE
     Dates: start: 20181226

REACTIONS (3)
  - Performance status decreased [None]
  - Pain [None]
  - Rheumatoid arthritis [None]

NARRATIVE: CASE EVENT DATE: 20190508
